FAERS Safety Report 8271144-1 (Version None)
Quarter: 2012Q1

REPORT INFORMATION
  Report Type: 
  Country: None (occurrence: None)
  Receive Date: 20120327
  Receipt Date: 20100215
  Transmission Date: 20120608
  Serious: Yes (Other)
  Sender: FDA-Public Use
  Company Number: PHEH2009US18453

PATIENT
  Age: 60 Year
  Sex: Female
  Weight: 55.3 kg

DRUGS (3)
  1. GLEEVEC [Suspect]
     Indication: CHRONIC MYELOID LEUKAEMIA
     Dosage: 400 MG, QD, ORAL, 400 MG, QD, ORAL
     Route: 048
     Dates: start: 20091204, end: 20091215
  2. GLEEVEC [Suspect]
     Indication: CHRONIC MYELOID LEUKAEMIA
     Dosage: 400 MG, QD, ORAL, 400 MG, QD, ORAL
     Route: 048
     Dates: start: 20091228, end: 20091229
  3. LEVOTHYROXINE SODIUM [Concomitant]

REACTIONS (13)
  - RASH MACULO-PAPULAR [None]
  - HEADACHE [None]
  - PYREXIA [None]
  - HYPOAESTHESIA ORAL [None]
  - ERYTHEMA [None]
  - RASH GENERALISED [None]
  - ANGIOEDEMA [None]
  - HYPERSENSITIVITY [None]
  - URTICARIA [None]
  - LIP SWELLING [None]
  - PARAESTHESIA ORAL [None]
  - PRURITUS [None]
  - UPPER RESPIRATORY TRACT INFECTION [None]
